FAERS Safety Report 4952031-0 (Version None)
Quarter: 2006Q1

REPORT INFORMATION
  Report Type: 
  Country: None (occurrence: None)
  Receive Date: 20060322
  Receipt Date: 20060322
  Transmission Date: 20060701
  Serious: Yes (Other)
  Sender: FDA-Public Use
  Company Number: None

PATIENT
  Age: 40 Year
  Sex: Female

DRUGS (5)
  1. COPAXONE [Suspect]
     Indication: MULTIPLE SCLEROSIS
     Dosage: 20 MG DAILY SQ
     Route: 058
     Dates: start: 20050101
  2. LEXAPRO [Concomitant]
  3. FLEXERIL [Concomitant]
  4. MOTRIN [Concomitant]
  5. LYRICA [Concomitant]

REACTIONS (3)
  - PRURITUS [None]
  - SENSORY DISTURBANCE [None]
  - URTICARIA [None]
